FAERS Safety Report 8078116-0 (Version None)
Quarter: 2012Q1

REPORT INFORMATION
  Report Type: 
  Country: None (occurrence: None)
  Receive Date: 20120127
  Receipt Date: 20110104
  Transmission Date: 20120608
  Serious: No
  Sender: FDA-Public Use
  Company Number: US-ABBOTT-10P-163-0684256-00

PATIENT
  Age: 16 Year
  Sex: Female

DRUGS (6)
  1. ZANTAC [Concomitant]
     Indication: PRODUCT USED FOR UNKNOWN INDICATION
  2. HUMIRA [Suspect]
     Dosage: DAY 15
  3. HUMIRA [Suspect]
     Dates: end: 20101219
  4. ASACOL [Concomitant]
     Indication: PRODUCT USED FOR UNKNOWN INDICATION
     Dosage: 2 PILLS TID
  5. HUMIRA [Suspect]
     Indication: CROHN'S DISEASE
     Dosage: DAY 1
     Dates: start: 20101103
  6. PREDNISONE [Concomitant]
     Indication: PRODUCT USED FOR UNKNOWN INDICATION

REACTIONS (20)
  - PAIN [None]
  - RASH [None]
  - INFLUENZA LIKE ILLNESS [None]
  - MOUTH ULCERATION [None]
  - PHARYNGEAL ULCERATION [None]
  - INJECTION SITE PAIN [None]
  - HEADACHE [None]
  - INJECTION SITE HAEMATOMA [None]
  - DIARRHOEA [None]
  - VOMITING [None]
  - INJECTION SITE HAEMORRHAGE [None]
  - PYREXIA [None]
  - FATIGUE [None]
  - DARK CIRCLES UNDER EYES [None]
  - FREQUENT BOWEL MOVEMENTS [None]
  - CROHN'S DISEASE [None]
  - MIGRAINE [None]
  - ARTHRALGIA [None]
  - INJECTION SITE PAPULE [None]
  - ABDOMINAL PAIN [None]
